FAERS Safety Report 7473828-1 (Version None)
Quarter: 2011Q2

REPORT INFORMATION
  Report Type: 
  Country: None (occurrence: None)
  Receive Date: 20110511
  Receipt Date: 20110506
  Transmission Date: 20111010
  Serious: Yes (Other)
  Sender: FDA-Public Use
  Company Number: US-B.I. PHARMACEUTICALS,INC./RIDGEFIELD-2011-BP-09301BP

PATIENT
  Sex: Male

DRUGS (8)
  1. XALATAN SOLUTION [Concomitant]
  2. CALCIUM [Concomitant]
     Indication: SUPPLEMENTATION THERAPY
  3. FIBER [Concomitant]
     Indication: SUPPLEMENTATION THERAPY
  4. PRADAXA [Suspect]
     Dosage: 150 MG
     Route: 048
     Dates: start: 20110207
  5. VITAMIN D [Concomitant]
     Indication: SUPPLEMENTATION THERAPY
  6. NORTRIPTYLINE HCL [Concomitant]
     Dosage: 40 MG
  7. PRADAXA [Suspect]
     Indication: ATRIAL FIBRILLATION
     Dosage: 300 MG
     Route: 048
     Dates: start: 20110123, end: 20110207
  8. TERAZOSIN HCL [Concomitant]
     Dosage: 5 MG

REACTIONS (5)
  - ORTHOSTATIC HYPOTENSION [None]
  - MUSCULAR WEAKNESS [None]
  - LOSS OF CONSCIOUSNESS [None]
  - EPISTAXIS [None]
  - TREMOR [None]
